FAERS Safety Report 23591089 (Version 1)
Quarter: 2024Q1

REPORT INFORMATION
  Report Type: Spontaneous
  Country: US (occurrence: US)
  Receive Date: 20240304
  Receipt Date: 20240304
  Transmission Date: 20240410
  Serious: No
  Sender: FDA-Public Use
  Company Number: US-BAYER-2024A031288

PATIENT

DRUGS (1)
  1. MIRALAX [Suspect]
     Active Substance: POLYETHYLENE GLYCOL 3350
     Dosage: 1 DF, QD
     Route: 048
     Dates: start: 202402

REACTIONS (6)
  - Abdominal distension [Unknown]
  - Abdominal pain [Unknown]
  - Abdominal pain [Unknown]
  - Diarrhoea [Unknown]
  - Diarrhoea [Unknown]
  - Drug ineffective [Unknown]
